FAERS Safety Report 15651011 (Version 2)
Quarter: 2018Q4

REPORT INFORMATION
  Report Type: Spontaneous
  Country: US (occurrence: US)
  Receive Date: 20181123
  Receipt Date: 20181130
  Transmission Date: 20190205
  Serious: Yes (Hospitalization, Other)
  Sender: FDA-Public Use
  Company Number: US-AUROBINDO-AUR-APL-2018-055668

PATIENT
  Age: 19 Year
  Sex: Female
  Weight: 69 kg

DRUGS (1)
  1. ACETAMINOPHEN+DIPHENHYDRAMINE [Suspect]
     Active Substance: ACETAMINOPHEN\DIPHENHYDRAMINE HYDROCHLORIDE
     Indication: PRODUCT USED FOR UNKNOWN INDICATION
     Dosage: PURCHASED A BOTTLE OF ACETAMINOPHEN/DIPHENHYDRAMINE TABLETS AND PROMPTLY INGESTED 86.5 G APAP/4.325
     Route: 048

REACTIONS (7)
  - Haemoglobin decreased [Recovered/Resolved]
  - Vomiting [Recovered/Resolved]
  - Prothrombin time prolonged [Recovered/Resolved]
  - Hepatotoxicity [Recovering/Resolving]
  - Overdose [Recovering/Resolving]
  - Anaemia [Recovered/Resolved]
  - Haemolysis [Recovered/Resolved]
